FAERS Safety Report 4692194-8 (Version None)
Quarter: 2005Q2

REPORT INFORMATION
  Report Type: 
  Country: None (occurrence: None)
  Receive Date: 20050614
  Receipt Date: 20050601
  Transmission Date: 20051028
  Serious: Yes (Other)
  Sender: FDA-Public Use
  Company Number: 2005082248

PATIENT
  Age: 67 Year
  Sex: Female

DRUGS (4)
  1. AZULFIDINE [Suspect]
     Indication: TENDON DISORDER
     Dosage: 1000 MG (500 MG, 2 IN 1 D), ORAL
     Route: 048
  2. BUCILLAMINE (BUCILLAMINE) [Suspect]
     Indication: TENDON DISORDER
     Dosage: 100 MG (50 MG, 2 IN 1 D), ORAL
     Route: 048
  3. NOZLEN (SODIUM GUALENATE) [Concomitant]
  4. ALFAROL (ALFACALCIDOL) [Concomitant]

REACTIONS (5)
  - ASTHENOPIA [None]
  - DIZZINESS [None]
  - GINGIVAL ATROPHY [None]
  - HYPOACUSIS [None]
  - SALIVARY GLAND PAIN [None]
